FAERS Safety Report 6523636-0 (Version None)
Quarter: 2009Q4

REPORT INFORMATION
  Report Type: 
  Country: None (occurrence: None)
  Receive Date: 20091231
  Receipt Date: 20091229
  Transmission Date: 20100525
  Serious: Yes (Death)
  Sender: FDA-Public Use
  Company Number: PHEH2009US17040

PATIENT
  Sex: Male

DRUGS (3)
  1. EXJADE [Suspect]
     Indication: IRON OVERLOAD
     Dosage: 1500 MG, QD
     Route: 048
     Dates: start: 20090619, end: 20090715
  2. EXJADE [Suspect]
     Dosage: UNK
     Route: 065
     Dates: start: 20090701, end: 20090701
  3. TRANSFUSIONS [Concomitant]

REACTIONS (3)
  - FUNGAL INFECTION [None]
  - MUCORMYCOSIS [None]
  - MULTI-ORGAN FAILURE [None]
